FAERS Safety Report 8231277-2 (Version None)
Quarter: 2012Q1

REPORT INFORMATION
  Report Type: 
  Country: None (occurrence: None)
  Receive Date: 20120321
  Receipt Date: 20120309
  Transmission Date: 20120608
  Serious: Yes (Other)
  Sender: FDA-Public Use
  Company Number: AUR-APL-2012-01451

PATIENT
  Age: 62 Year
  Sex: Female
  Weight: 72.11 kg

DRUGS (9)
  1. VENLAFAXINE [Suspect]
     Indication: DEPRESSION
  2. EFFEXOR XR [Suspect]
     Indication: DEPRESSION
     Dosage: (37.5 MG, 1 D), (450 MG, 1 D), (150 MG, 1 D)
     Dates: start: 20060101
  3. EFFEXOR XR [Suspect]
     Indication: DEPRESSION
     Dosage: (37.5 MG, 1 D), (450 MG, 1 D), (150 MG, 1 D)
     Dates: start: 19991001
  4. TRAZODONE HCL [Suspect]
     Indication: DEPRESSION
  5. JANUVIA [Concomitant]
  6. EXCEDRIN (VINCENTS /00110301/) [Concomitant]
  7. BENICAR HCT [Concomitant]
  8. PAXIL [Suspect]
     Indication: DEPRESSION
  9. NEXIUM [Concomitant]

REACTIONS (25)
  - ANGER [None]
  - IRRITABILITY [None]
  - HEADACHE [None]
  - CONFUSIONAL STATE [None]
  - MEMORY IMPAIRMENT [None]
  - DRUG WITHDRAWAL SYNDROME [None]
  - DYSSTASIA [None]
  - WEIGHT DECREASED [None]
  - OVERDOSE [None]
  - TEARFULNESS [None]
  - VIOLENCE-RELATED SYMPTOM [None]
  - ANXIETY [None]
  - MENTAL DISORDER [None]
  - LIVER FUNCTION TEST ABNORMAL [None]
  - LOGORRHOEA [None]
  - INSOMNIA [None]
  - MOOD SWINGS [None]
  - ANHEDONIA [None]
  - DEPRESSED MOOD [None]
  - BLOOD PRESSURE INCREASED [None]
  - SUICIDAL IDEATION [None]
  - DISCOMFORT [None]
  - IMPATIENCE [None]
  - FEELING ABNORMAL [None]
  - TINEA PEDIS [None]
